FAERS Safety Report 9658934 (Version 2)
Quarter: 2013Q4

REPORT INFORMATION
  Report Type: Spontaneous
  Country: ES (occurrence: ES)
  Receive Date: 20131031
  Receipt Date: 20131031
  Transmission Date: 20140711
  Serious: Yes (Hospitalization)
  Sender: FDA-Public Use
  Company Number: ES-AMGEN-ESPSP2013072599

PATIENT
  Age: 79 Year
  Sex: Female
  Weight: 61 kg

DRUGS (9)
  1. PROLIA [Suspect]
     Indication: OSTEOPOROSIS POSTMENOPAUSAL
     Dosage: UNK UNK, Q6MO
     Route: 058
     Dates: start: 201204
  2. OMEPRAZOLE [Concomitant]
  3. AMERIDE                            /00206601/ [Concomitant]
     Dosage: 5/50
  4. IDEOS UNIDIA [Concomitant]
  5. CALCIUM [Concomitant]
     Route: 048
  6. PLANTABEN                          /00029101/ [Concomitant]
     Dosage: UNK UNK, TID
  7. PROTELOS [Concomitant]
  8. ZYTRAM [Concomitant]
     Dosage: 200
  9. ZOLEDRONIC [Concomitant]
     Dosage: UNK
     Dates: start: 200911

REACTIONS (5)
  - Diverticulitis [Unknown]
  - Vasculitis [Unknown]
  - Purpura [Not Recovered/Not Resolved]
  - Hypersensitivity [Unknown]
  - Skin discolouration [Unknown]
